FAERS Safety Report 8951019 (Version 2)
Quarter: 2013Q1

REPORT INFORMATION
  Report Type: Spontaneous
  Country: BR (occurrence: BR)
  Receive Date: 20121207
  Receipt Date: 20130225
  Transmission Date: 20140127
  Serious: Yes (Death, Hospitalization, Other)
  Sender: FDA-Public Use
  Company Number: PHHY2012BR112145

PATIENT
  Age: 81 Year
  Sex: Male
  Weight: 75 kg

DRUGS (4)
  1. ZOMETA [Suspect]
     Dates: start: 20120327
  2. ZOMETA [Suspect]
     Dosage: UNK
     Dates: start: 20120403
  3. LOSARTAN [Concomitant]
     Dosage: UNK UKN, UNK
     Dates: start: 20120317
  4. LOSARTAN [Concomitant]
     Dosage: UNK UKN, UNK
     Dates: start: 20120403

REACTIONS (10)
  - Melaena [Fatal]
  - Bone cancer [Fatal]
  - Hepatic cancer metastatic [Fatal]
  - Gastric cancer [Fatal]
  - Formication [Fatal]
  - Gastrointestinal haemorrhage [Fatal]
  - Haematochezia [Unknown]
  - Abnormal faeces [Unknown]
  - Hyperhidrosis [Unknown]
  - Agitation [Unknown]
